FAERS Safety Report 5018490-2 (Version None)
Quarter: 2006Q2

REPORT INFORMATION
  Report Type: 
  Country: None (occurrence: None)
  Receive Date: 20060530
  Receipt Date: 20050509
  Transmission Date: 20061013
  Serious: Yes (Hospitalization, Other)
  Sender: FDA-Public Use
  Company Number: 2005065738

PATIENT
  Age: 54 Year
  Sex: Female

DRUGS (11)
  1. LYRICA [Suspect]
     Indication: NEURALGIA
     Dosage: 150 MG (75 MG, 2 IN 1 D), ORAL
     Route: 048
     Dates: start: 20050218, end: 20050422
  2. MERCAPTOPURINE [Suspect]
     Indication: AUTOIMMUNE DISORDER
     Dosage: ORAL
     Route: 048
     Dates: start: 20040923, end: 20050421
  3. MERCAPTOPURINE [Suspect]
     Indication: BILIARY CIRRHOSIS
     Dosage: ORAL
     Route: 048
     Dates: start: 20040923, end: 20050421
  4. INDIVINA (ESTRADIOL VALERATE, MEDROXYPROGESTERONE ACETATE) [Concomitant]
  5. AMOXICILLIN [Concomitant]
  6. CLARITHROMYCIN [Concomitant]
  7. PREDNISOLONE [Concomitant]
  8. ALL OTHER THERAPEUTIC PRODUCTS [Concomitant]
  9. OMEPRAZOLE [Concomitant]
  10. LEKOVIT CA (CALCIUM CARBONATE, COLECALCIFEROL) [Concomitant]
  11. ALENDRONATE (ALENDRONATE SODIUM) [Concomitant]

REACTIONS (4)
  - ALANINE AMINOTRANSFERASE INCREASED [None]
  - BLOOD BILIRUBIN INCREASED [None]
  - DISEASE PROGRESSION [None]
  - NEUTROPENIA [None]
